FAERS Safety Report 7425028-9 (Version None)
Quarter: 2011Q2

REPORT INFORMATION
  Report Type: 
  Country: None (occurrence: None)
  Receive Date: 20110419
  Receipt Date: 20110406
  Transmission Date: 20111010
  Serious: Yes (Other)
  Sender: FDA-Public Use
  Company Number: US-AMGEN-USASP2011018312

PATIENT
  Age: 83 Year
  Sex: Male

DRUGS (1)
  1. ARANESP [Suspect]
     Indication: MYELODYSPLASTIC SYNDROME
     Dates: start: 20110401

REACTIONS (9)
  - GENERAL PHYSICAL HEALTH DETERIORATION [None]
  - PALLOR [None]
  - RESPIRATORY RATE INCREASED [None]
  - MALAISE [None]
  - DYSPNOEA [None]
  - SOMNOLENCE [None]
  - DIARRHOEA [None]
  - FEELING COLD [None]
  - LETHARGY [None]
